FAERS Safety Report 8490889-1 (Version None)
Quarter: 2012Q2

REPORT INFORMATION
  Report Type: 
  Country: None (occurrence: None)
  Receive Date: 20120628
  Receipt Date: 20120628
  Transmission Date: 20120825
  Serious: Yes (Death)
  Sender: FDA-Public Use
  Company Number: None

PATIENT
  Age: 88 Year
  Sex: Male
  Weight: 42.8 kg

DRUGS (1)
  1. SULFAMETHOXAZOLE AND TRIMETHOPRIM [Suspect]
     Indication: CLOSTRIDIAL INFECTION
     Dosage: MG BID PO
     Route: 048
     Dates: start: 20120509, end: 20120524

REACTIONS (1)
  - CLOSTRIDIUM DIFFICILE COLITIS [None]
